FAERS Safety Report 6444664-X (Version None)
Quarter: 2009Q4

REPORT INFORMATION
  Report Type: 
  Country: None (occurrence: None)
  Receive Date: 20091116
  Receipt Date: 20091116
  Transmission Date: 20100525
  Serious: Yes (Hospitalization, Disabling, Other)
  Sender: FDA-Public Use
  Company Number: None

PATIENT
  Age: 19 Year
  Sex: Male
  Weight: 73.0291 kg

DRUGS (4)
  1. HALDOL [Suspect]
     Indication: DEPRESSION
     Dosage: ONE TABLET - ONCE A DAY ORAL
     Route: 048
     Dates: start: 19820101, end: 19820101
  2. HALDOL [Suspect]
     Indication: DEPRESSION
     Dosage: ONE TABLET - ONCE A DAY ORAL
     Route: 048
     Dates: start: 19870101, end: 20050101
  3. SCHICK RAZOR BLADES [Suspect]
     Dosage: ONE BLADE SEVERAL TIMES SHAVING
     Dates: start: 19820101, end: 19820101
  4. TRILAFON [Concomitant]

REACTIONS (3)
  - INTENTIONAL SELF-INJURY [None]
  - JOINT INJURY [None]
  - LIMB INJURY [None]
